FAERS Safety Report 14066306 (Version 1)
Quarter: 2017Q4

REPORT INFORMATION
  Report Type: Spontaneous
  Country: CZ (occurrence: CZ)
  Receive Date: 20171009
  Receipt Date: 20171009
  Transmission Date: 20180321
  Serious: Yes (Hospitalization, Other)
  Sender: FDA-Public Use
  Company Number: CZ-BRISTOL-MYERS SQUIBB COMPANY-BMS-2017-088555

PATIENT
  Age: 66 Year
  Sex: Male
  Weight: 115 kg

DRUGS (2)
  1. ELIQUIS [Suspect]
     Active Substance: APIXABAN
     Indication: PULMONARY EMBOLISM
     Route: 048
     Dates: start: 20170908, end: 20170920
  2. TEZEO [Concomitant]
     Active Substance: TELMISARTAN
     Indication: HYPERTENSION
     Route: 048

REACTIONS (2)
  - Intestinal haemorrhage [Unknown]
  - Diverticulitis [Unknown]

NARRATIVE: CASE EVENT DATE: 20170920
